FAERS Safety Report 9688090 (Version 2)
Quarter: 2014Q1

REPORT INFORMATION
  Report Type: Spontaneous
  Country: BR (occurrence: BR)
  Receive Date: 20131114
  Receipt Date: 20140116
  Transmission Date: 20141002
  Serious: Yes (Other)
  Sender: FDA-Public Use
  Company Number: BR-ASTRAZENECA-2013SE81909

PATIENT
  Age: 69 Year
  Sex: Male
  Weight: 69 kg

DRUGS (4)
  1. ATACAND COMB [Suspect]
     Indication: HYPERTENSION
     Dosage: 16/5 MG, DAILY
     Route: 048
  2. SELOZOK [Suspect]
     Indication: HYPERTENSION
     Route: 048
  3. BRILINTA [Suspect]
     Indication: CORONARY ARTERY OCCLUSION
     Route: 048
     Dates: start: 20131106
  4. SOMALGIN CARDIO [Concomitant]
     Indication: INFARCTION

REACTIONS (2)
  - Coronary artery occlusion [Recovered/Resolved]
  - Off label use [Not Recovered/Not Resolved]
